FAERS Safety Report 5822857-X (Version None)
Quarter: 2008Q3

REPORT INFORMATION
  Report Type: 
  Country: None (occurrence: None)
  Receive Date: 20080725
  Receipt Date: 20080721
  Transmission Date: 20090109
  Serious: Yes (Other)
  Sender: FDA-Public Use
  Company Number: DE-BRISTOL-MYERS SQUIBB COMPANY-14228522

PATIENT
  Age: 55 Year
  Sex: Female
  Weight: 63 kg

DRUGS (7)
  1. ORENCIA [Suspect]
     Indication: POLYARTHRITIS
     Route: 042
     Dates: start: 20080101, end: 20080601
  2. ARAVA [Concomitant]
  3. PREDNISOLONE [Concomitant]
  4. MELOXICAM [Concomitant]
  5. CALCIUM [Concomitant]
  6. VITAMIN D [Concomitant]
  7. INSULIN [Concomitant]

REACTIONS (3)
  - DIABETIC RETINOPATHY [None]
  - RETINAL HAEMORRHAGE [None]
  - VISUAL ACUITY REDUCED [None]
